FAERS Safety Report 15935434 (Version 4)
Quarter: 2019Q1

REPORT INFORMATION
  Report Type: Spontaneous
  Country: JP (occurrence: JP)
  Receive Date: 20190207
  Receipt Date: 20190322
  Transmission Date: 20190417
  Serious: Yes (Life-Threatening, Other)
  Sender: FDA-Public Use
  Company Number: JP-TAKEDA-2019TJP002815

PATIENT
  Age: 79 Year
  Sex: Male
  Weight: 60 kg

DRUGS (9)
  1. MEROPENEM                          /01250502/ [Concomitant]
     Active Substance: MEROPENEM
     Indication: INFECTION PROPHYLAXIS
     Dosage: 0.5 GRAM, BID
     Route: 041
     Dates: start: 20190115, end: 20190121
  2. PREDONINE [Suspect]
     Active Substance: PREDNISOLONE
     Dosage: 35 MILLIGRAM
     Route: 048
     Dates: start: 20190125, end: 20190201
  3. PREDONINE [Suspect]
     Active Substance: PREDNISOLONE
     Dosage: 30 MILLIGRAM
     Route: 048
     Dates: start: 20190202, end: 20190206
  4. ASACOL [Concomitant]
     Active Substance: MESALAMINE
     Indication: COLITIS ULCERATIVE
     Dosage: 3600 MILLIGRAM
     Route: 048
     Dates: start: 20190111, end: 20190206
  5. MEROPENEM                          /01250502/ [Concomitant]
     Active Substance: MEROPENEM
     Dosage: 0.5 GRAM, BID
     Route: 041
     Dates: start: 20190203
  6. ENTERONON-R [Concomitant]
     Active Substance: PROBIOTICS NOS
     Indication: INFECTION PROPHYLAXIS
     Dosage: 1 GRAM, TID
     Route: 048
     Dates: start: 20190107, end: 20190206
  7. MIYA-BM [Concomitant]
     Active Substance: CLOSTRIDIUM BUTYRICUM SPORES STRAIN M-55
     Indication: INFECTION PROPHYLAXIS
     Dosage: 1 GRAM, TID
     Route: 048
     Dates: start: 20190107, end: 20190206
  8. ENTYVIO [Suspect]
     Active Substance: VEDOLIZUMAB
     Indication: COLITIS ULCERATIVE
     Dosage: 300 MILLIGRAM, QD
     Route: 041
     Dates: start: 20190204, end: 20190204
  9. PREDONINE [Suspect]
     Active Substance: PREDNISOLONE
     Indication: COLITIS ULCERATIVE
     Dosage: 40 MILLIGRAM
     Route: 048
     Dates: start: 20190118, end: 20190124

REACTIONS (2)
  - Large intestine perforation [Recovered/Resolved with Sequelae]
  - Dehydration [Recovered/Resolved]

NARRATIVE: CASE EVENT DATE: 20190205
